FAERS Safety Report 7068059-3 (Version None)
Quarter: 2010Q4

REPORT INFORMATION
  Report Type: 
  Country: None (occurrence: None)
  Receive Date: 20101027
  Receipt Date: 20101027
  Transmission Date: 20110411
  Serious: Yes (Other)
  Sender: FDA-Public Use
  Company Number: None

PATIENT

DRUGS (3)
  1. RISPERDAL [Suspect]
     Indication: AUTISM
     Dosage: 0.5 MG TID ORAL
     Route: 048
     Dates: start: 20070101
  2. RISPERDAL [Suspect]
     Indication: COMPLEX PARTIAL SEIZURES
     Dosage: 0.5 MG TID ORAL
     Route: 048
     Dates: start: 20070101
  3. RISPERDAL [Suspect]
     Indication: ENCEPHALOPATHY
     Dosage: 0.5 MG TID ORAL
     Route: 048
     Dates: start: 20070101

REACTIONS (1)
  - AGGRESSION [None]
